FAERS Safety Report 4431617-6 (Version None)
Quarter: 2004Q3

REPORT INFORMATION
  Report Type: 
  Country: None (occurrence: None)
  Receive Date: 20040824
  Receipt Date: 20040813
  Transmission Date: 20050211
  Serious: Yes (Hospitalization)
  Sender: FDA-Public Use
  Company Number: CH-ROCHE-377643

PATIENT
  Age: 66 Year
  Sex: Female

DRUGS (7)
  1. VALIUM [Suspect]
     Indication: DRUG USE FOR UNKNOWN INDICATION
     Route: 048
     Dates: start: 20040625, end: 20040629
  2. CIPROXIN [Suspect]
     Route: 042
     Dates: start: 20040626, end: 20040629
  3. MST CONTINUS [Suspect]
     Indication: PAIN
     Route: 048
     Dates: start: 20040625, end: 20040629
  4. TEGRETOL [Suspect]
     Indication: EPILEPSY
     Route: 048
     Dates: start: 20040625, end: 20040628
  5. PHENOBARBITAL TAB [Suspect]
     Indication: EPILEPSY
     Route: 048
     Dates: start: 20040625
  6. ASPIRIN [Concomitant]
     Route: 048
     Dates: start: 20040625
  7. ALDACTONE [Concomitant]
     Route: 048
     Dates: start: 20040625

REACTIONS (3)
  - CONFUSIONAL STATE [None]
  - NERVOUSNESS [None]
  - TREMOR [None]
